FAERS Safety Report 9053328 (Version 1)
Quarter: 2013Q1

REPORT INFORMATION
  Report Type: Spontaneous
  Country: JP (occurrence: JP)
  Receive Date: 20130207
  Receipt Date: 20130207
  Transmission Date: 20140127
  Serious: Yes (Other)
  Sender: FDA-Public Use
  Company Number: PHHY2012JP075938

PATIENT
  Age: 40 Year
  Sex: Female

DRUGS (1)
  1. HYDRALAZINE [Suspect]
     Indication: GESTATIONAL HYPERTENSION

REACTIONS (2)
  - Peripartum cardiomyopathy [Unknown]
  - Exposure during pregnancy [Unknown]
